FAERS Safety Report 7817506-5 (Version None)
Quarter: 2011Q4

REPORT INFORMATION
  Report Type: 
  Country: None (occurrence: None)
  Receive Date: 20111013
  Receipt Date: 20110111
  Transmission Date: 20120403
  Serious: No
  Sender: FDA-Public Use
  Company Number: TPA2010A06359

PATIENT
  Age: 74 Year
  Sex: Male

DRUGS (8)
  1. ACTOS [Suspect]
     Dosage: (30 MG)
     Dates: start: 20050501, end: 20100901
  2. BISOPROLOL FUMARATE [Concomitant]
  3. ASPIRIN [Concomitant]
  4. LOZIDE (INDAPAMIDE HEMIHYDRATE) [Concomitant]
  5. ZOCOR [Concomitant]
  6. METFORMIN HCL [Concomitant]
  7. GLYBURIDE [Concomitant]
  8. NORVASC [Concomitant]

REACTIONS (1)
  - BLADDER CANCER [None]
